FAERS Safety Report 19515454 (Version 3)
Quarter: 2022Q1

REPORT INFORMATION
  Report Type: Report from Study
  Country: CN (occurrence: CN)
  Receive Date: 20210709
  Receipt Date: 20220310
  Transmission Date: 20220424
  Serious: Yes (Other)
  Sender: FDA-Public Use
  Company Number: CN-TAKEDA-2021TUS030313

PATIENT
  Age: 92 Year
  Sex: Female
  Weight: 51 kg

DRUGS (21)
  1. IXAZOMIB [Suspect]
     Active Substance: IXAZOMIB
     Indication: Plasma cell myeloma
     Dosage: 4 MILLIGRAM, 1/WEEK
     Route: 048
     Dates: start: 20210326, end: 202105
  2. IXAZOMIB [Suspect]
     Active Substance: IXAZOMIB
     Dosage: 3 MILLIGRAM, 1/WEEK
     Route: 048
     Dates: start: 20210602
  3. ESOMEPRAZOLE SODIUM [Concomitant]
     Active Substance: ESOMEPRAZOLE SODIUM
     Indication: Prophylaxis
     Dosage: 40 MILLIGRAM, QD
     Route: 042
     Dates: start: 20210310, end: 20210429
  4. GLUTATHIONE [Concomitant]
     Active Substance: GLUTATHIONE
     Indication: Prophylaxis
     Dosage: 1.8 GRAM, QD
     Route: 042
     Dates: start: 20210310, end: 20210318
  5. GLUTATHIONE [Concomitant]
     Active Substance: GLUTATHIONE
     Dosage: 0.6 GRAM, QD
     Route: 042
     Dates: start: 20210324, end: 20210324
  6. POTASSIUM CHLORIDE [Concomitant]
     Active Substance: POTASSIUM CHLORIDE
     Indication: Fluid replacement
     Dosage: 1 GRAM, BID
     Route: 042
     Dates: start: 20210328, end: 20210328
  7. VITAMIN B6 [Concomitant]
     Active Substance: PYRIDOXINE HYDROCHLORIDE
     Indication: Fluid replacement
     Dosage: 0.2 GRAM, QD
     Route: 042
     Dates: start: 20210328, end: 20210328
  8. DEXAMETHASONE [Concomitant]
     Active Substance: DEXAMETHASONE
     Indication: Peripheral vascular disorder
     Dosage: UNK, QD
     Route: 048
     Dates: start: 20210324, end: 20210326
  9. BICYCLOL [Concomitant]
     Active Substance: BICYCLOL
     Indication: Prophylaxis
     Dosage: 50 MILLIGRAM, TID
     Route: 048
     Dates: start: 20210304, end: 2021
  10. CLOSTRIDIUM BUTYRICUM SPORES STRAIN M-55 [Concomitant]
     Active Substance: CLOSTRIDIUM BUTYRICUM SPORES STRAIN M-55
     Indication: Functional gastrointestinal disorder
     Dosage: 40 MILLIGRAM, TID
     Route: 048
     Dates: start: 20210310, end: 2021
  11. SODIUM BICARBONATE [Concomitant]
     Active Substance: SODIUM BICARBONATE
     Indication: Antacid therapy
     Dosage: 1 GRAM, TID
     Route: 048
     Dates: start: 20210326, end: 2021
  12. ADENOSINE CYCLIC PHOSPHATE MEGLUMINE [Concomitant]
     Active Substance: ADENOSINE CYCLIC PHOSPHATE MEGLUMINE
     Indication: Prophylaxis
     Dosage: 120 MILLIGRAM, QD
     Route: 042
     Dates: start: 20210310, end: 20210318
  13. BORTEZOMIB [Concomitant]
     Active Substance: BORTEZOMIB
     Indication: Peripheral vascular disorder
     Dosage: 1 MILLIGRAM, QD
     Route: 042
     Dates: start: 20210303, end: 20210317
  14. OMEPRAZOLE [Concomitant]
     Active Substance: OMEPRAZOLE
     Indication: Prophylaxis
     Dosage: 20 MILLIGRAM, QD
     Route: 048
     Dates: start: 20210304, end: 20210514
  15. COMPOUND GLYCYRRHIZA MIXTURE ORAL SOLUTION ^CENTER^ [Concomitant]
     Indication: Productive cough
     Dosage: UNK
     Route: 048
     Dates: start: 20210228, end: 20210228
  16. DEXAMETHASONE ACETATE [Concomitant]
     Active Substance: DEXAMETHASONE ACETATE
     Indication: Plasma cell myeloma
     Dosage: 2.25 MILLIGRAM, QD
     Route: 048
     Dates: start: 20210304, end: 2021
  17. METHYLCOBALAMIN [Concomitant]
     Active Substance: METHYLCOBALAMIN
     Indication: Nervous system disorder
     Dosage: 0.5 MILLIGRAM, TID
     Route: 048
     Dates: start: 20210304, end: 20210317
  18. METHYLCOBALAMIN [Concomitant]
     Active Substance: METHYLCOBALAMIN
     Dosage: 1 MILLIGRAM, TID
     Route: 048
     Dates: start: 20210428, end: 202105
  19. MONTMORILLONITE [Concomitant]
     Active Substance: MONTMORILLONITE
     Indication: Diarrhoea
     Dosage: 3 GRAM, TID
     Route: 048
     Dates: start: 20210328, end: 2021
  20. DICLOFENAC DIETHYLAMINE [Concomitant]
     Active Substance: DICLOFENAC DIETHYLAMINE
     Indication: Analgesic therapy
     Dosage: 20 GRAM
     Route: 061
     Dates: start: 20210428, end: 20210428
  21. GLYCERIN [Concomitant]
     Active Substance: GLYCERIN
     Indication: Laxative supportive care
     Dosage: 20 MILLILITER
     Route: 054
     Dates: start: 20210420

REACTIONS (3)
  - Large intestinal obstruction [Recovered/Resolved]
  - Gastrointestinal bacterial infection [Recovered/Resolved]
  - Decreased appetite [Not Recovered/Not Resolved]

NARRATIVE: CASE EVENT DATE: 20210525
